FAERS Safety Report 7125773-9 (Version None)
Quarter: 2010Q4

REPORT INFORMATION
  Report Type: 
  Country: None (occurrence: None)
  Receive Date: 20101129
  Receipt Date: 20101122
  Transmission Date: 20110411
  Serious: Yes (Other)
  Sender: FDA-Public Use
  Company Number: B0685513A

PATIENT
  Age: 48 Year
  Sex: Female
  Weight: 61 kg

DRUGS (2)
  1. RELENZA [Suspect]
     Indication: INFLUENZA
     Route: 055
     Dates: start: 20091202, end: 20091206
  2. FERVEX [Concomitant]
     Indication: INFLUENZA

REACTIONS (6)
  - ASTHENIA [None]
  - CHILLS [None]
  - HEADACHE [None]
  - LEUKOCYTOSIS [None]
  - OROPHARYNGEAL PAIN [None]
  - PYREXIA [None]
